FAERS Safety Report 12902397 (Version 1)
Quarter: 2016Q4

REPORT INFORMATION
  Report Type: Spontaneous
  Country: US (occurrence: US)
  Receive Date: 20161102
  Receipt Date: 20161102
  Transmission Date: 20170207
  Serious: No
  Sender: FDA-Public Use
  Company Number: US-TEVA-699855ACC

PATIENT
  Age: 16 Year
  Sex: Female
  Weight: 45.4 kg

DRUGS (1)
  1. PLAN B ONE-STEP [Suspect]
     Active Substance: LEVONORGESTREL
     Indication: POST COITAL CONTRACEPTION
     Dates: start: 20161003, end: 20161003

REACTIONS (6)
  - Intentional product misuse [Unknown]
  - Nightmare [Recovered/Resolved]
  - Vomiting [Not Recovered/Not Resolved]
  - Prescription drug used without a prescription [Unknown]
  - Somnolence [Recovered/Resolved]
  - Dizziness [Unknown]

NARRATIVE: CASE EVENT DATE: 20161003
